FAERS Safety Report 8734417 (Version 3)
Quarter: 2012Q4

REPORT INFORMATION
  Report Type: 
  Country: DE (occurrence: DE)
  Receive Date: 20120821
  Receipt Date: 20121129
  Transmission Date: 20130627
  Serious: Yes (Life-Threatening, Hospitalization, Other)
  Sender: FDA-Public Use
  Company Number: DE-JNJFOC-20120807219

PATIENT
  Age: 71 Year
  Sex: Male

DRUGS (5)
  1. ZYTIGA [Suspect]
     Indication: PROSTATE CANCER METASTATIC
     Route: 048
     Dates: start: 20120612, end: 20120725
  2. ZOMETA [Concomitant]
     Indication: METASTASES TO BONE
     Route: 050
  3. FLUTAMID [Concomitant]
     Route: 065
  4. TRENANTONE [Concomitant]
     Route: 065
  5. DELIX [Concomitant]
     Indication: HYPERTENSION
     Route: 065

REACTIONS (4)
  - Congestive cardiomyopathy [Recovering/Resolving]
  - Urinary retention [Recovered/Resolved]
  - Pain [Recovering/Resolving]
  - Gastroenteritis [Unknown]
